FAERS Safety Report 6467506-5 (Version None)
Quarter: 2009Q4

REPORT INFORMATION
  Report Type: 
  Country: None (occurrence: None)
  Receive Date: 20091202
  Receipt Date: 20091124
  Transmission Date: 20100525
  Serious: Yes (Death, Other)
  Sender: FDA-Public Use
  Company Number: US-WYE-H08131609

PATIENT
  Sex: Female

DRUGS (6)
  1. PREMPRO [Suspect]
  2. PROVERA [Suspect]
  3. ESTRACE [Suspect]
  4. ESTRADERM [Suspect]
  5. PREMARIN [Suspect]
  6. MEDROXYPROGESTERONE ACETATE [Suspect]

REACTIONS (1)
  - BREAST CANCER METASTATIC [None]
